FAERS Safety Report 7516051-4 (Version None)
Quarter: 2011Q2

REPORT INFORMATION
  Report Type: 
  Country: None (occurrence: None)
  Receive Date: 20110520
  Receipt Date: 20110509
  Transmission Date: 20111010
  Serious: Yes (Death)
  Sender: FDA-Public Use
  Company Number: UTC-006952

PATIENT
  Age: 57 Year
  Sex: Male
  Weight: 89.1 kg

DRUGS (2)
  1. REMODULIN [Suspect]
     Dosage: 7.92 UG/KG (0.0055 UG/KG, 1 IN 1 MIN), INTRAVENOUS
     Route: 042
     Dates: start: 20110308
  2. ADCIRCA [Concomitant]

REACTIONS (2)
  - PNEUMONIA [None]
  - GASTROINTESTINAL HAEMORRHAGE [None]
